FAERS Safety Report 8909746 (Version 1)
Quarter: 2012Q4

REPORT INFORMATION
  Report Type: 
  Country: US (occurrence: US)
  Receive Date: 20121115
  Receipt Date: 20121115
  Transmission Date: 20130627
  Serious: Yes (Other)
  Sender: FDA-Public Use
  Company Number: US-ELI_LILLY_AND_COMPANY-US201211002164

PATIENT
  Age: 63 Year
  Sex: Male

DRUGS (3)
  1. HUMULIN NPH [Suspect]
     Indication: DIABETES MELLITUS
     Dosage: 7 u, each evening
  2. HUMULIN NPH [Suspect]
     Dosage: 15 u, single
  3. HUMALOG [Concomitant]
     Indication: DIABETES MELLITUS
     Dosage: 4 u, tid
     Dates: start: 2002

REACTIONS (2)
  - Renal transplant [Recovered/Resolved]
  - Incorrect dose administered [Unknown]
